FAERS Safety Report 25395785 (Version 1)
Quarter: 2025Q2

REPORT INFORMATION
  Report Type: Spontaneous
  Country: US (occurrence: US)
  Receive Date: 20250604
  Receipt Date: 20250604
  Transmission Date: 20250717
  Serious: No
  Sender: TAIHO ONCOLOGY INC
  Company Number: US-TAIHOP-2025-005734

PATIENT
  Sex: Female

DRUGS (2)
  1. INQOVI [Suspect]
     Active Substance: CEDAZURIDINE\DECITABINE
     Indication: Myelodysplastic syndrome
     Dosage: 35 MG DECITABINE+ 100 MG CEDAZURIDINE?5 PILLS EVERY 28 DAYS?CYCLE UNKNOWN
     Route: 048
  2. INQOVI [Suspect]
     Active Substance: CEDAZURIDINE\DECITABINE
     Dosage: 35 MG DECITABINE+ 100 MG CEDAZURIDINE?2 PILLS EVERY 28 DAYS?CYCLE UNKNOWN
     Route: 048

REACTIONS (1)
  - Intentional product use issue [Unknown]
